FAERS Safety Report 5083794-4 (Version None)
Quarter: 2006Q3

REPORT INFORMATION
  Report Type: 
  Country: None (occurrence: None)
  Receive Date: 20060818
  Receipt Date: 20060809
  Transmission Date: 20061208
  Serious: Yes (Disabling)
  Sender: FDA-Public Use
  Company Number: DE-ABBOTT-06P-062-0340297-00

PATIENT
  Age: 65 Year
  Sex: Male
  Weight: 71 kg

DRUGS (5)
  1. ZEMPLAR [Suspect]
     Indication: HYPERPARATHYROIDISM SECONDARY
     Route: 042
     Dates: start: 20060105
  2. ALUMINIUM CHLORHYDROXIDE-COMPLEX [Concomitant]
     Indication: HYPERPARATHYROIDISM SECONDARY
     Route: 048
  3. SEVELAMER HYDROCHLORIDE [Concomitant]
     Indication: HYPERPARATHYROIDISM SECONDARY
     Route: 048
  4. BICANORM [Concomitant]
     Indication: DRUG USE FOR UNKNOWN INDICATION
     Route: 048
  5. ALFACALCIDOL [Concomitant]
     Indication: HYPERPARATHYROIDISM SECONDARY
     Route: 048

REACTIONS (1)
  - SHUNT OCCLUSION [None]
